FAERS Safety Report 14647138 (Version 1)
Quarter: 2018Q1

REPORT INFORMATION
  Report Type: Spontaneous
  Country: JP (occurrence: JP)
  Receive Date: 20180316
  Receipt Date: 20180316
  Transmission Date: 20180509
  Serious: Yes (Hospitalization, Other)
  Sender: FDA-Public Use
  Company Number: JP-ALEMBIC PHARMACUETICALS LIMITED-2018SCAL000176

PATIENT

DRUGS (2)
  1. LITHIUM CARBONATE. [Suspect]
     Active Substance: LITHIUM CARBONATE
     Indication: BIPOLAR DISORDER
     Dosage: 600 MG, QD
  2. AZILSARTAN [Interacting]
     Active Substance: AZILSARTAN KAMEDOXOMIL
     Indication: HYPERTENSION
     Dosage: UNK, QD

REACTIONS (11)
  - Action tremor [Unknown]
  - Drug interaction [Unknown]
  - General physical health deterioration [Unknown]
  - Ataxia [Unknown]
  - Myoclonus [Unknown]
  - Decreased appetite [Unknown]
  - Diarrhoea [Unknown]
  - Antipsychotic drug level increased [Unknown]
  - Toxicity to various agents [Unknown]
  - Constipation [Unknown]
  - Altered state of consciousness [Unknown]
